FAERS Safety Report 4855366-5 (Version None)
Quarter: 2005Q4

REPORT INFORMATION
  Report Type: 
  Country: None (occurrence: None)
  Receive Date: 20051125
  Receipt Date: 20050824
  Transmission Date: 20060501
  Serious: Yes (Hospitalization)
  Sender: FDA-Public Use
  Company Number: US-JNJFOC-20050801656

PATIENT
  Age: 89 Year
  Sex: Male
  Weight: 81.6475 kg

DRUGS (5)
  1. LEVAQUIN [Suspect]
     Indication: DRUG USE FOR UNKNOWN INDICATION
     Dosage: ORAL
     Route: 048
     Dates: start: 20050730
  2. REMINYL (GALANTAMINE HBR) [Concomitant]
  3. NAMENDA [Concomitant]
  4. ZYPREXA [Concomitant]
  5. ATIVAN [Concomitant]

REACTIONS (5)
  - DYSPHAGIA [None]
  - SPEECH DISORDER [None]
  - SWOLLEN TONGUE [None]
  - URINARY RETENTION [None]
  - URINARY TRACT INFECTION [None]
